FAERS Safety Report 9159286 (Version 1)
Quarter: 2013Q1

REPORT INFORMATION
  Report Type: Spontaneous
  Country: US (occurrence: None)
  Receive Date: 20130312
  Receipt Date: 20130312
  Transmission Date: 20140127
  Serious: Yes (Hospitalization)
  Sender: FDA-Public Use
  Company Number: None

PATIENT
  Age: 32 Year
  Sex: Female
  Weight: 123 kg

DRUGS (1)
  1. HYDROXYCHLOROQUINE [Suspect]
     Indication: SYSTEMIC LUPUS ERYTHEMATOSUS
     Route: 048
     Dates: start: 2006

REACTIONS (3)
  - Abdominal pain [None]
  - Stevens-Johnson syndrome [None]
  - Toxic epidermal necrolysis [None]
